FAERS Safety Report 6959366-0 (Version None)
Quarter: 2010Q3

REPORT INFORMATION
  Report Type: 
  Country: None (occurrence: None)
  Receive Date: 20100831
  Receipt Date: 20100831
  Transmission Date: 20110219
  Serious: No
  Sender: FDA-Public Use
  Company Number: None

PATIENT
  Age: 74 Year
  Sex: Female
  Weight: 57.6068 kg

DRUGS (1)
  1. VYTORIN [Suspect]
     Indication: BLOOD CHOLESTEROL INCREASED
     Dosage: ONE A DAY PO
     Route: 048

REACTIONS (4)
  - DIARRHOEA [None]
  - GAIT DISTURBANCE [None]
  - MEDICATION ERROR [None]
  - PAIN IN EXTREMITY [None]
